FAERS Safety Report 16429604 (Version 4)
Quarter: 2020Q3

REPORT INFORMATION
  Report Type: Spontaneous
  Country: CA (occurrence: CA)
  Receive Date: 20190614
  Receipt Date: 20200824
  Transmission Date: 20201102
  Serious: Yes (Hospitalization, Other)
  Sender: FDA-Public Use
  Company Number: CA-SUN PHARMACEUTICAL INDUSTRIES LTD-2019R1-210201

PATIENT
  Age: 13 Year
  Sex: Male

DRUGS (4)
  1. APO DOXY [Suspect]
     Active Substance: DOXYCYCLINE HYDROCHLORIDE
     Indication: ACNE CONGLOBATA
     Dosage: UNK
     Route: 065
  2. DOXYCYCLINE. [Suspect]
     Active Substance: DOXYCYCLINE
     Indication: ACNE CONGLOBATA
     Dosage: 100 MILLIGRAM, BID
     Route: 048
  3. ISOTRETINOIN. [Suspect]
     Active Substance: ISOTRETINOIN
     Indication: ACNE CONGLOBATA
     Dosage: 0.5 MILLIGRAM/KILOGRAM, DAILY
     Route: 048
  4. PREDNISONE. [Suspect]
     Active Substance: PREDNISONE
     Indication: NEUTROPHILIC DERMATOSIS
     Dosage: 1 EVERY 1 DAY
     Route: 065

REACTIONS (21)
  - Arthralgia [Recovering/Resolving]
  - Intentional product use issue [Unknown]
  - Skin plaque [Unknown]
  - Pyoderma gangrenosum [Recovering/Resolving]
  - Myalgia [Recovering/Resolving]
  - Pyrexia [Recovering/Resolving]
  - Condition aggravated [Unknown]
  - Acne [Unknown]
  - Drug ineffective [Unknown]
  - Neutrophilic dermatosis [Recovering/Resolving]
  - Pain [Recovering/Resolving]
  - Skin ulcer [Unknown]
  - Red blood cell sedimentation rate increased [Unknown]
  - Acne conglobata [Unknown]
  - Acne fulminans [Recovering/Resolving]
  - Acute febrile neutrophilic dermatosis [Recovering/Resolving]
  - Leukocytosis [Unknown]
  - Transaminases increased [Recovering/Resolving]
  - C-reactive protein increased [Unknown]
  - Off label use [Unknown]
  - Product administered to patient of inappropriate age [Unknown]
